FAERS Safety Report 4374293-3 (Version None)
Quarter: 2004Q2

REPORT INFORMATION
  Report Type: 
  Country: None (occurrence: None)
  Receive Date: 20040603
  Receipt Date: 20040518
  Transmission Date: 20050107
  Serious: Yes (Hospitalization)
  Sender: FDA-Public Use
  Company Number: JP_040503140

PATIENT
  Age: 81 Year
  Sex: Male
  Weight: 58 kg

DRUGS (11)
  1. VANCOMYCIN [Suspect]
     Indication: STAPHYLOCOCCAL INFECTION
     Dosage: 500 MG DAY
     Dates: start: 20040308, end: 20040311
  2. MINOMYCIN (MINOCYCLINE HYDROCHLORIDE) [Concomitant]
  3. ASPIRIN [Concomitant]
  4. CARVEDILOL [Concomitant]
  5. NU LOTAN (LOSARTAN POTASSIUM) [Concomitant]
  6. GRAMALIL (TIAPRIDE HYDROCHLORIDE) [Concomitant]
  7. BIOFERMIN [Concomitant]
  8. MAGNESIUM OXIDE [Concomitant]
  9. URALYT [Concomitant]
  10. ALLOPURINOL [Concomitant]
  11. BUP-4 (PROPIVERINE HYDROCHLORIDE) [Concomitant]

REACTIONS (2)
  - FACE OEDEMA [None]
  - GENERALISED ERYTHEMA [None]
